FAERS Safety Report 25325215 (Version 1)
Quarter: 2025Q2

REPORT INFORMATION
  Report Type: Spontaneous
  Country: AR (occurrence: AR)
  Receive Date: 20250516
  Receipt Date: 20250516
  Transmission Date: 20250716
  Serious: Yes (Other)
  Sender: SANDOZ
  Company Number: AR-002147023-NVSC2025AR035105

PATIENT
  Sex: Female

DRUGS (9)
  1. KISQALI [Suspect]
     Active Substance: RIBOCICLIB SUCCINATE
     Dosage: 2 DF, QD
     Route: 065
  2. KISQALI [Suspect]
     Active Substance: RIBOCICLIB SUCCINATE
     Indication: Breast cancer metastatic
     Dosage: 600 MG, QD
     Route: 065
     Dates: start: 20250211
  3. KISQALI [Suspect]
     Active Substance: RIBOCICLIB SUCCINATE
     Indication: Metastases to spine
     Route: 065
  4. LETROZOLE [Suspect]
     Active Substance: LETROZOLE
     Indication: Breast cancer metastatic
     Dosage: 2.5 MG, QD
     Route: 065
     Dates: start: 20250211
  5. LETROZOLE [Suspect]
     Active Substance: LETROZOLE
     Indication: Metastases to spine
  6. ZOLEDRONIC ACID [Suspect]
     Active Substance: ZOLEDRONIC ACID
     Indication: Breast cancer metastatic
     Dosage: 1 DF, QMO
     Route: 065
     Dates: start: 20250211
  7. ZOLEDRONIC ACID [Suspect]
     Active Substance: ZOLEDRONIC ACID
     Indication: Metastases to spine
  8. ENALAPRIL MALEATE [Concomitant]
     Active Substance: ENALAPRIL MALEATE
     Indication: Hypertension
     Dosage: 0.5 MG, QD
     Route: 065
  9. PREGABALIN [Concomitant]
     Active Substance: PREGABALIN
     Indication: Spinal pain
     Route: 065
     Dates: start: 202404

REACTIONS (15)
  - Metastasis [Recovering/Resolving]
  - Emotional distress [Unknown]
  - Influenza [Recovering/Resolving]
  - Micturition disorder [Unknown]
  - Platelet count decreased [Unknown]
  - Gait inability [Unknown]
  - Blister [Unknown]
  - White blood cell count decreased [Unknown]
  - Pain [Recovering/Resolving]
  - Peripheral swelling [Unknown]
  - Memory impairment [Unknown]
  - Nausea [Recovered/Resolved]
  - Anxiety [Unknown]
  - Vomiting [Recovered/Resolved]
  - Alopecia [Unknown]
